FAERS Safety Report 9125601 (Version 2)
Quarter: 2013Q2

REPORT INFORMATION
  Report Type: Spontaneous
  Country: FR (occurrence: FR)
  Receive Date: 20130121
  Receipt Date: 20130510
  Transmission Date: 20140414
  Serious: Yes (Other)
  Sender: FDA-Public Use
  Company Number: FR-GLAXOSMITHKLINE-B0860609A

PATIENT
  Age: 33 Year
  Sex: Female
  Weight: 58 kg

DRUGS (3)
  1. DEROXAT [Suspect]
     Indication: ANXIETY
     Dosage: 10MG PER DAY
     Route: 048
     Dates: start: 200907
  2. CERAZETTE [Concomitant]
     Indication: CONTRACEPTION
     Dosage: 1UNIT PER DAY
     Route: 048
  3. AERIUS [Concomitant]

REACTIONS (7)
  - Aortic valve incompetence [Not Recovered/Not Resolved]
  - Tachycardia [Recovered/Resolved]
  - Dizziness [Recovered/Resolved]
  - Painful respiration [Recovered/Resolved]
  - Micturition urgency [Recovered/Resolved]
  - Bundle branch block right [Unknown]
  - Ventricular extrasystoles [Unknown]
